FAERS Safety Report 8054429-3 (Version None)
Quarter: 2012Q1

REPORT INFORMATION
  Report Type: 
  Country: None (occurrence: None)
  Receive Date: 20120118
  Receipt Date: 20120113
  Transmission Date: 20120608
  Serious: Yes (Hospitalization, Other)
  Sender: FDA-Public Use
  Company Number: PHHO2011US09437

PATIENT
  Sex: Male

DRUGS (12)
  1. COUMADIN [Suspect]
     Dosage: UNK
     Dates: start: 20110929
  2. LIPITOR [Concomitant]
  3. FUROSEMIDE [Concomitant]
     Dates: start: 20110711
  4. KLOR-CON [Concomitant]
  5. PREDNISONE [Suspect]
     Dosage: 5 MG, UNK
     Dates: start: 20090723
  6. HYDRALAZINE HYDROCHLORIDE [Concomitant]
  7. MYCOPHENOLATE MOFETIL [Suspect]
     Dates: start: 20070723
  8. ISOSORBIDE MONONITRATE [Concomitant]
  9. PERCOCET [Concomitant]
     Indication: HYPERTENSION
  10. METOPROLOL SUCCINATE [Concomitant]
  11. NEORAL [Suspect]
     Indication: RENAL TRANSPLANT
     Dosage: 175 MG, QD
     Dates: start: 20110218
  12. CLONIDINE HYDROCHLORIDE [Concomitant]

REACTIONS (8)
  - DIFFUSE VASCULITIS [None]
  - PNEUMONIA [None]
  - ISCHAEMIC STROKE [None]
  - HAEMATURIA [None]
  - MUSCLE HAEMORRHAGE [None]
  - CARDIAC FAILURE CONGESTIVE [None]
  - CHEST PAIN [None]
  - PYELONEPHRITIS [None]
